FAERS Safety Report 4700345-1 (Version None)
Quarter: 2005Q2

REPORT INFORMATION
  Report Type: 
  Country: None (occurrence: None)
  Receive Date: 20050209
  Receipt Date: 20050209
  Transmission Date: 20051028
  Serious: Yes (Disabling)
  Sender: FDA-Public Use
  Company Number: None

PATIENT
  Sex: Male
  Weight: 79.3795 kg

DRUGS (4)
  1. BUPROPION HCL [Suspect]
     Dosage: 150MG BID
     Dates: start: 20040901, end: 20041001
  2. XANAX [Concomitant]
  3. EFFEXOR XR [Concomitant]
  4. RISPERDAL [Concomitant]

REACTIONS (3)
  - ASTHENIA [None]
  - DEPRESSED MOOD [None]
  - IRRITABILITY [None]
